FAERS Safety Report 11481210 (Version 1)
Quarter: 2015Q3

REPORT INFORMATION
  Report Type: Spontaneous
  Country: US (occurrence: US)
  Receive Date: 20150909
  Receipt Date: 20150909
  Transmission Date: 20151125
  Serious: No
  Sender: FDA-Public Use
  Company Number: US-BAYER-2015-417057

PATIENT
  Age: 86 Year
  Sex: Male
  Weight: 68.93 kg

DRUGS (4)
  1. ALEVE [Suspect]
     Active Substance: NAPROXEN SODIUM
     Indication: ANALGESIC THERAPY
     Dosage: 1 DF, QD
     Route: 048
  2. GLYBURIDE. [Concomitant]
     Active Substance: GLYBURIDE
  3. LOSARTAN. [Concomitant]
     Active Substance: LOSARTAN
  4. BAYER LOW DOSE [Concomitant]
     Active Substance: ASPIRIN
     Dosage: 1 DF, QD
     Route: 048

REACTIONS (2)
  - Product use issue [None]
  - Off label use [None]
